FAERS Safety Report 24121785 (Version 1)
Quarter: 2024Q3

REPORT INFORMATION
  Report Type: Spontaneous
  Country: US (occurrence: US)
  Receive Date: 20240722
  Receipt Date: 20240722
  Transmission Date: 20241017
  Serious: No
  Sender: SANOFI AVENTIS
  Company Number: US-SA-SAC20240716000972

PATIENT
  Sex: Female
  Weight: 88.45 kg

DRUGS (2)
  1. DUPIXENT [Suspect]
     Active Substance: DUPILUMAB
     Indication: Dermatitis atopic
     Dosage: 300 MG, QOW
     Route: 058
  2. RINVOQ [Concomitant]
     Active Substance: UPADACITINIB
     Dosage: UNK

REACTIONS (6)
  - Drug hypersensitivity [Unknown]
  - Skin exfoliation [Unknown]
  - Rash erythematous [Unknown]
  - Dry skin [Unknown]
  - Heart rate increased [Unknown]
  - Alopecia [Unknown]
